FAERS Safety Report 8312022-9 (Version None)
Quarter: 2012Q1

REPORT INFORMATION
  Report Type: 
  Country: None (occurrence: None)
  Receive Date: 20120315
  Receipt Date: 20110411
  Transmission Date: 20120608
  Serious: Yes (Other)
  Sender: FDA-Public Use
  Company Number: PHHY2011US30507

PATIENT
  Age: 57 Year
  Sex: Male
  Weight: 77.1 kg

DRUGS (6)
  1. KLONOPIN [Concomitant]
  2. JANUVIA [Concomitant]
  3. SIMVASTATIN [Concomitant]
  4. SERTRALINE (SERTRALINE) TALBET [Concomitant]
  5. GILENYA [Suspect]
     Indication: MULTIPLE SCLEROSIS
     Dosage: 0.5 MG, QD, ORAL
     Route: 048
     Dates: start: 20110406
  6. ENABLEX [Concomitant]

REACTIONS (5)
  - BACK PAIN [None]
  - ABDOMINAL PAIN [None]
  - DIARRHOEA [None]
  - MYALGIA [None]
  - DECREASED APPETITE [None]
